FAERS Safety Report 17418748 (Version 1)
Quarter: 2020Q1

REPORT INFORMATION
  Report Type: Spontaneous
  Country: ES (occurrence: ES)
  Receive Date: 20200214
  Receipt Date: 20200214
  Transmission Date: 20200409
  Serious: Yes (Other)
  Sender: FDA-Public Use
  Company Number: ES-TEVA-2020-ES-1185818

PATIENT
  Age: 71 Year
  Sex: Male

DRUGS (4)
  1. BUPROPION HIDROCLORURO (1131CH) [Suspect]
     Active Substance: BUPROPION HYDROCHLORIDE
     Indication: DEPRESSION
  2. TRIMBOW 87 MICROGRAMOS/5 MICROGRAMOS/9 MICROGRAMOS SOLUCION PARA INHAL [Concomitant]
  3. BUPROPION HIDROCLORURO (1131CH) [Suspect]
     Active Substance: BUPROPION HYDROCHLORIDE
     Indication: ANXIETY
     Dosage: 300 MG 1 DAYS
     Route: 048
     Dates: start: 20191115, end: 20200127
  4. SALBUTAMOL ALDO-UNION 100 MICROGRAMOS/DOSIS SUSPENSION PARA INHALACION [Concomitant]

REACTIONS (3)
  - Irritability [Unknown]
  - Hostility [Unknown]
  - Aggression [Unknown]

NARRATIVE: CASE EVENT DATE: 20200127
